FAERS Safety Report 25014131 (Version 3)
Quarter: 2025Q3

REPORT INFORMATION
  Report Type: Spontaneous
  Country: JP (occurrence: JP)
  Receive Date: 20250226
  Receipt Date: 20250729
  Transmission Date: 20251021
  Serious: Yes (Death)
  Sender: MERCK SHARP & DOHME LLC
  Company Number: JP-009507513-2258257

PATIENT
  Age: 9 Decade
  Sex: Male

DRUGS (1)
  1. KEYTRUDA [Suspect]
     Active Substance: PEMBROLIZUMAB
     Indication: Head and neck cancer stage IV
     Dosage: 200 MG ? 1/3 WEEKS.?FORMULATION: INJECTION (ALSO SOLUTION FOR INFUSION)
     Route: 041
     Dates: start: 202411, end: 202501

REACTIONS (1)
  - Malignant neoplasm progression [Fatal]
